FAERS Safety Report 5250079-2 (Version None)
Quarter: 2007Q1

REPORT INFORMATION
  Report Type: 
  Country: None (occurrence: None)
  Receive Date: 20070228
  Receipt Date: 20060201
  Transmission Date: 20070707
  Serious: No
  Sender: FDA-Public Use
  Company Number: US-GLAXOSMITHKLINE-A0591955A

PATIENT
  Sex: Male

DRUGS (6)
  1. LAMICTAL [Suspect]
     Indication: BIPOLAR DISORDER
     Dosage: 25MG PER DAY
     Route: 048
     Dates: start: 20060118
  2. WELLBUTRIN SR [Suspect]
     Indication: DEPRESSION
     Dosage: 150MG TWICE PER DAY
     Route: 048
     Dates: start: 20050601, end: 20060104
  3. LEXAPRO [Concomitant]
  4. RESTORIL [Concomitant]
  5. KLONOPIN [Concomitant]
  6. BENADRYL [Concomitant]

REACTIONS (5)
  - ABNORMAL DREAMS [None]
  - AGITATION [None]
  - MOOD ALTERED [None]
  - NAUSEA [None]
  - SOMNOLENCE [None]
